FAERS Safety Report 9477785 (Version 3)
Quarter: 2015Q4

REPORT INFORMATION
  Report Type: Report from Study
  Country: US (occurrence: US)
  Receive Date: 20130827
  Receipt Date: 20151029
  Transmission Date: 20160305
  Serious: Yes (Other)
  Sender: FDA-Public Use
  Company Number: US-ROCHE-1262151

PATIENT
  Sex: Male

DRUGS (6)
  1. GLUCOPHAGE XR [Concomitant]
     Active Substance: METFORMIN HYDROCHLORIDE
     Route: 048
  2. TROPICAMIDE. [Concomitant]
     Active Substance: TROPICAMIDE
     Route: 065
  3. PHENYLEPHRINE [Concomitant]
     Active Substance: PHENYLEPHRINE\PHENYLEPHRINE HYDROCHLORIDE
     Route: 065
  4. LUCENTIS [Suspect]
     Active Substance: RANIBIZUMAB
     Indication: DIABETIC RETINOPATHY
     Route: 050
  5. LUCENTIS [Suspect]
     Active Substance: RANIBIZUMAB
     Indication: DIABETIC EYE DISEASE
     Dosage: MONTHLY X4 THEN QUARTERLY
     Route: 050
  6. BETADINE [Concomitant]
     Active Substance: POVIDONE-IODINE

REACTIONS (8)
  - Retinal neovascularisation [Unknown]
  - Vision blurred [Unknown]
  - Diabetic retinopathy [Unknown]
  - Diabetic retinal oedema [Unknown]
  - Pupillary light reflex tests abnormal [Unknown]
  - Vitreous floaters [Unknown]
  - Vitreous haemorrhage [Not Recovered/Not Resolved]
  - Macular oedema [Unknown]
